FAERS Safety Report 16849154 (Version 1)
Quarter: 2019Q3

REPORT INFORMATION
  Report Type: Report from Study
  Country: US (occurrence: US)
  Receive Date: 20190925
  Receipt Date: 20190925
  Transmission Date: 20191005
  Serious: Yes (Hospitalization)
  Sender: FDA-Public Use
  Company Number: US-ROCHE-2412039

PATIENT
  Age: 72 Year
  Sex: Male
  Weight: 63.56 kg

DRUGS (1)
  1. OCREVUS [Suspect]
     Active Substance: OCRELIZUMAB
     Indication: MULTIPLE SCLEROSIS
     Dosage: 04/APR/2019, 18/APR/2019?300 MG PER 14 DAYS AND THEN 600 MG PER 6 MONTH
     Route: 042
     Dates: start: 20190117

REACTIONS (4)
  - Pneumonia [Recovering/Resolving]
  - Fall [Unknown]
  - White blood cell count increased [Unknown]
  - Head injury [Recovering/Resolving]

NARRATIVE: CASE EVENT DATE: 20190904
